FAERS Safety Report 9556214 (Version 1)
Quarter: 2013Q3

REPORT INFORMATION
  Report Type: Report from Study
  Country: CA (occurrence: CA)
  Receive Date: 20130926
  Receipt Date: 20130926
  Transmission Date: 20140515
  Serious: Yes (Other)
  Sender: FDA-Public Use
  Company Number: CA-JNJFOC-20130912279

PATIENT
  Age: 42 Year
  Sex: Male
  Weight: 71 kg

DRUGS (7)
  1. REMICADE [Suspect]
     Indication: CROHN^S DISEASE
     Route: 042
     Dates: start: 201202
  2. IMURAN [Concomitant]
     Route: 065
  3. IMODIUM [Concomitant]
     Route: 065
  4. IRON [Concomitant]
     Route: 048
  5. B 12 [Concomitant]
     Route: 065
  6. PREVACID [Concomitant]
     Route: 065
  7. CHOLESTYRAMINE [Concomitant]
     Route: 065

REACTIONS (2)
  - Abdominal pain [Recovered/Resolved]
  - Scar [Unknown]
